FAERS Safety Report 24227079 (Version 1)
Quarter: 2024Q3

REPORT INFORMATION
  Report Type: Spontaneous
  Country: US (occurrence: None)
  Receive Date: 20240819
  Receipt Date: 20240819
  Transmission Date: 20241017
  Serious: Yes (Disabling, Other)
  Sender: Public
  Company Number: None

PATIENT
  Age: 51 Year
  Sex: Female
  Weight: 92.25 kg

DRUGS (1)
  1. MODAFINIL [Suspect]
     Active Substance: MODAFINIL
     Indication: Fatigue
     Dosage: 1 TABLET ORAL
     Route: 048
     Dates: start: 20221101, end: 20240601

REACTIONS (4)
  - Nausea [None]
  - Dizziness [None]
  - Chills [None]
  - Withdrawal syndrome [None]

NARRATIVE: CASE EVENT DATE: 20221101
